FAERS Safety Report 6956896-2 (Version None)
Quarter: 2010Q3

REPORT INFORMATION
  Report Type: 
  Country: None (occurrence: None)
  Receive Date: 20100830
  Receipt Date: 20100616
  Transmission Date: 20110219
  Serious: No
  Sender: FDA-Public Use
  Company Number: US-ALLERGAN-1007883US

PATIENT
  Age: 66 Year
  Sex: Female

DRUGS (6)
  1. SANCTURA XR [Suspect]
     Indication: HYPERTONIC BLADDER
     Dosage: UNK
  2. PROCARDIA XL [Concomitant]
  3. HTZ [Concomitant]
  4. LEVOXYL [Concomitant]
  5. FISH OIL [Concomitant]
  6. MULTI VITAMIN AND MINERAL + SELENIUM [Concomitant]

REACTIONS (1)
  - PAIN IN EXTREMITY [None]
